FAERS Safety Report 4634857-6 (Version None)
Quarter: 2005Q2

REPORT INFORMATION
  Report Type: 
  Country: None (occurrence: None)
  Receive Date: 20050414
  Receipt Date: 20041022
  Transmission Date: 20051028
  Serious: Yes (Death, Life-Threatening, Hospitalization, Disabling, Other)
  Sender: FDA-Public Use
  Company Number: 200420527GDDC

PATIENT
  Age: 56 Year
  Sex: Female
  Weight: 68 kg

DRUGS (9)
  1. TAXOTERE [Suspect]
     Indication: BREAST CANCER
     Route: 042
     Dates: start: 20020717, end: 20020918
  2. DOXORUBICIN HCL [Suspect]
     Indication: BREAST CANCER
     Route: 042
     Dates: start: 20020424, end: 20020626
  3. CYCLOPHOSPHAMIDE [Suspect]
     Indication: BREAST CANCER
     Route: 042
     Dates: start: 20020424, end: 20020626
  4. L-THYROXINE [Concomitant]
     Indication: HYPOTHYROIDISM
     Route: 048
     Dates: start: 20030114, end: 20030218
  5. LAMISIL [Concomitant]
     Indication: ONYCHOMYCOSIS
     Route: 048
     Dates: start: 20030319
  6. TAMOXIFEN CITRATE [Concomitant]
     Indication: BREAST CANCER
     Route: 048
     Dates: start: 20021113
  7. UNKNOWN DRUG [Concomitant]
     Indication: HERPES ZOSTER
     Route: 048
     Dates: start: 20021102, end: 20030212
  8. TEGRETOL [Concomitant]
     Indication: HERPES ZOSTER
     Route: 048
     Dates: start: 20021102, end: 20030304
  9. MILGAMMA [Concomitant]
     Indication: HERPES ZOSTER
     Dosage: DOSE: UNK
     Route: 048
     Dates: start: 20021102, end: 20030304

REACTIONS (10)
  - CARDIAC ASTHMA [None]
  - CARDIAC FAILURE [None]
  - CARDIOMEGALY [None]
  - HYPOTHYROIDISM [None]
  - INTRACARDIAC THROMBUS [None]
  - ONYCHOMYCOSIS [None]
  - PLEURAL EFFUSION [None]
  - PULMONARY OEDEMA [None]
  - SYSTEMIC LUPUS ERYTHEMATOSUS [None]
  - VENTRICULAR HYPOKINESIA [None]
